FAERS Safety Report 19779157 (Version 4)
Quarter: 2025Q1

REPORT INFORMATION
  Report Type: Report from Study
  Country: NL (occurrence: NL)
  Receive Date: 20210902
  Receipt Date: 20250109
  Transmission Date: 20250408
  Serious: Yes (Other)
  Sender: SANOFI AVENTIS
  Company Number: NL-SA-SAC20210901000715

PATIENT
  Age: 19 Year

DRUGS (26)
  1. DUPILUMAB [Suspect]
     Active Substance: DUPILUMAB
     Indication: Dermatitis atopic
     Dosage: 300 MG, Q3W
     Route: 065
     Dates: start: 20180309
  2. PREDNISONE [Concomitant]
     Active Substance: PREDNISONE
     Dosage: 30 MG, BID; TWICE DAILY FOR 7 DAYS
  3. CETIRIZINE HYDROCHLORIDE [Concomitant]
     Active Substance: CETIRIZINE HYDROCHLORIDE
     Dosage: 5 MG, QD
  4. LEVOCETIRIZINE [Concomitant]
     Active Substance: LEVOCETIRIZINE
  5. EBASTINE [Concomitant]
     Active Substance: EBASTINE
     Dosage: UNK, QD (EVENING)
  6. EBASTINE [Concomitant]
     Active Substance: EBASTINE
  7. OMEPRAZOLE [Concomitant]
     Active Substance: OMEPRAZOLE
  8. IVABRADINE [Concomitant]
     Active Substance: IVABRADINE
     Dosage: 1 DF, BID
  9. IVABRADINE [Concomitant]
     Active Substance: IVABRADINE
     Dosage: 5 MG, BID
  10. MONTELUKAST [Concomitant]
     Active Substance: MONTELUKAST
  11. ATROVENT [Concomitant]
     Active Substance: IPRATROPIUM BROMIDE
  12. BUDESONIDE [Concomitant]
     Active Substance: BUDESONIDE
     Dosage: 0.5 MG/ML, BID
     Route: 055
  13. BUDESONIDE [Concomitant]
     Active Substance: BUDESONIDE
  14. COMBIVENT [Concomitant]
     Active Substance: ALBUTEROL SULFATE\IPRATROPIUM BROMIDE
     Dosage: 2 DF, BID; (EVERY 2 HOURS)
  15. DALTEPARIN SODIUM [Concomitant]
     Active Substance: DALTEPARIN SODIUM
     Indication: Prophylaxis
  16. COTRIMOXAZOLE [Concomitant]
     Active Substance: SULFAMETHOXAZOLE\TRIMETHOPRIM
  17. ALBUTEROL [Concomitant]
     Active Substance: ALBUTEROL
  18. FORMOTEROL [Concomitant]
     Active Substance: FORMOTEROL
     Dosage: 1 DF, TID
  19. CICLESONIDE [Concomitant]
     Active Substance: CICLESONIDE
     Dosage: 1 DF, TID
     Route: 055
  20. SERETIDE [Concomitant]
     Active Substance: FLUTICASONE PROPIONATE\SALMETEROL XINAFOATE
     Dosage: 1 DF, TID
  21. LIVOCAB [Concomitant]
  22. VENTOLIN [Concomitant]
     Active Substance: ALBUTEROL SULFATE
  23. CALCIUM CARBONATE [Concomitant]
     Active Substance: CALCIUM CARBONATE
  24. SERETIDE [Concomitant]
     Active Substance: FLUTICASONE PROPIONATE\SALMETEROL XINAFOATE
  25. ALVESCO [Concomitant]
     Active Substance: CICLESONIDE
  26. IPRATROPIUM [Concomitant]
     Active Substance: IPRATROPIUM

REACTIONS (3)
  - Amyotrophic lateral sclerosis [Recovered/Resolved]
  - Asthma [Recovered/Resolved]
  - Injection site reaction [Unknown]

NARRATIVE: CASE EVENT DATE: 20180821
